FAERS Safety Report 15484468 (Version 2)
Quarter: 2018Q4

REPORT INFORMATION
  Report Type: Report from Study
  Country: ZA (occurrence: ZA)
  Receive Date: 20181010
  Receipt Date: 20181116
  Transmission Date: 20190205
  Serious: Yes (Hospitalization)
  Sender: FDA-Public Use
  Company Number: ZA-SA-2018SA253034

PATIENT
  Age: 41 Year
  Sex: Female

DRUGS (5)
  1. OPTISULIN (INSULIN GLARGINE) [Suspect]
     Active Substance: INSULIN GLARGINE
     Dosage: 54 U, QD
     Route: 065
     Dates: start: 20180623
  2. GLUCOPHAGE XR [Concomitant]
     Active Substance: METFORMIN HYDROCHLORIDE
     Dosage: 2000 MG/L BS
     Route: 065
     Dates: start: 20020101
  3. HUMALOG [Concomitant]
     Active Substance: INSULIN LISPRO
     Dosage: 14 U, BT
     Route: 065
     Dates: start: 20180101
  4. OPTISULIN (INSULIN GLARGINE) [Suspect]
     Active Substance: INSULIN GLARGINE
     Indication: TYPE 2 DIABETES MELLITUS
     Dosage: 54 IU, QD
     Route: 065
     Dates: start: 20180221
  5. NO STUDY DRUG GIVEN [Suspect]
     Active Substance: UNSPECIFIED INGREDIENT
     Dosage: UNK

REACTIONS (2)
  - Bronchitis [Not Recovered/Not Resolved]
  - Pertussis [Not Recovered/Not Resolved]

NARRATIVE: CASE EVENT DATE: 20180901
